FAERS Safety Report 6673810-8 (Version None)
Quarter: 2010Q2

REPORT INFORMATION
  Report Type: 
  Country: None (occurrence: None)
  Receive Date: 20100407
  Receipt Date: 20100324
  Transmission Date: 20101027
  Serious: Yes (Other)
  Sender: FDA-Public Use
  Company Number: DSA_42844_2010

PATIENT
  Sex: Male

DRUGS (2)
  1. LORAZEPAM [Suspect]
     Indication: DRUG USE FOR UNKNOWN INDICATION
     Dosage: (0.5 MG QD ORAL), (0.5 MG QD ORAL)
     Route: 048
     Dates: start: 20100301, end: 20100301
  2. LORAZEPAM [Suspect]
     Indication: DRUG USE FOR UNKNOWN INDICATION
     Dosage: (0.5 MG QD ORAL), (0.5 MG QD ORAL)
     Route: 048
     Dates: start: 20100301, end: 20100301

REACTIONS (5)
  - DRUG WITHDRAWAL SYNDROME [None]
  - HEART RATE INCREASED [None]
  - HEPATIC PAIN [None]
  - HYPERHIDROSIS [None]
  - RENAL FAILURE [None]
